FAERS Safety Report 9663642 (Version 1)
Quarter: 2013Q4

REPORT INFORMATION
  Report Type: Spontaneous
  Country: US (occurrence: US)
  Receive Date: 20131101
  Receipt Date: 20131101
  Transmission Date: 20140711
  Serious: No
  Sender: FDA-Public Use
  Company Number: US-ENDO PHARMACEUTICALS INC.-CLOZ20110011

PATIENT
  Age: 55 Year
  Sex: Female

DRUGS (3)
  1. CLONAZEPAM 0.5MG [Suspect]
     Indication: FIBROMYALGIA
     Dosage: 1 TABLET Q 12HRS PRN
     Dates: start: 201007
  2. NEXIUM [Concomitant]
     Indication: GASTROOESOPHAGEAL REFLUX DISEASE
  3. ALEVE [Concomitant]

REACTIONS (1)
  - Drug ineffective [Recovered/Resolved]
